FAERS Safety Report 10581010 (Version 3)
Quarter: 2015Q1

REPORT INFORMATION
  Report Type: Spontaneous
  Country: IT (occurrence: None)
  Receive Date: 20141110
  Receipt Date: 20150114
  Transmission Date: 20150720
  Serious: Yes (Hospitalization)
  Sender: FDA-Public Use
  Company Number: 2014MPI01389

PATIENT
  Age: 51 Year
  Sex: Male
  Weight: 90 kg

DRUGS (5)
  1. BRENTUXIMAB VEDOTIN (BRENTUXIMAB VEDOTIN) INJECTION [Suspect]
     Active Substance: BRENTUXIMAB VEDOTIN
     Indication: HODGKIN^S DISEASE
     Route: 042
     Dates: start: 20140604, end: 20140926
  2. VINBLASTINE [Suspect]
     Active Substance: VINBLASTINE
     Indication: HODGKIN^S DISEASE
     Dosage: 12 MG, Q28D, INTRAVENOUS
     Route: 042
     Dates: start: 20140604, end: 20140926
  3. DOXORUBICIN [Suspect]
     Active Substance: DOXORUBICIN
     Indication: HODGKIN^S DISEASE
     Route: 042
     Dates: start: 20140604, end: 20140926
  4. RAMIPRIL(RAMIPRIL) [Concomitant]
  5. DACARBAZINE. [Suspect]
     Active Substance: DACARBAZINE
     Indication: HODGKIN^S DISEASE
     Dosage: 790 MG, Q28D, INTRAVENOUS
     Route: 042
     Dates: start: 20140604, end: 20140926

REACTIONS (9)
  - Syncope [None]
  - Hyperhidrosis [None]
  - General physical health deterioration [None]
  - Dysphagia [None]
  - Blood pressure decreased [None]
  - Electrocardiogram QT prolonged [None]
  - Acute kidney injury [None]
  - Tachycardia [None]
  - Venous thrombosis [None]

NARRATIVE: CASE EVENT DATE: 20141001
